FAERS Safety Report 9189194 (Version 2)
Quarter: 2013Q2

REPORT INFORMATION
  Report Type: Spontaneous
  Country: US (occurrence: None)
  Receive Date: 20130322
  Receipt Date: 20130411
  Transmission Date: 20140414
  Serious: Yes (Death, Hospitalization)
  Sender: FDA-Public Use
  Company Number: AUR-APL-2013-02401

PATIENT
  Age: 83 Year
  Sex: Female
  Weight: 62.6 kg

DRUGS (1)
  1. AMOXICILLIN+CLAVULANIC ACID [Suspect]
     Indication: BACTERIAL INFECTION
     Dosage: 500MG/125MG, 1 BY MOUTH TWICE DAILY, ORAL
     Dates: start: 20120410, end: 20120419

REACTIONS (3)
  - Abdominal pain upper [None]
  - Hyperphagia [None]
  - Painful defaecation [None]
